FAERS Safety Report 17878306 (Version 1)
Quarter: 2020Q2

REPORT INFORMATION
  Report Type: Spontaneous
  Country: AU (occurrence: AU)
  Receive Date: 20200610
  Receipt Date: 20200610
  Transmission Date: 20200714
  Serious: Yes (Other)
  Sender: FDA-Public Use
  Company Number: AU-009507513-2004-120946-NL

PATIENT
  Age: 30 Year
  Sex: Female
  Weight: 66 kg

DRUGS (4)
  1. TEGRETOL [Interacting]
     Active Substance: CARBAMAZEPINE
     Dosage: UNK
     Route: 048
  2. PERINDOPRIL [Concomitant]
     Active Substance: PERINDOPRIL
     Dosage: UNK DF, UNK
  3. PERINDOPRIL [Concomitant]
     Active Substance: PERINDOPRIL
  4. IMPLANON [Suspect]
     Active Substance: ETONOGESTREL
     Dosage: CONTINUING: NO, 1 IMPLANT
     Route: 058
     Dates: start: 20030116, end: 20040826

REACTIONS (4)
  - Abortion induced [Unknown]
  - Pregnancy with implant contraceptive [Unknown]
  - Drug interaction [Unknown]
  - Unintended pregnancy [Unknown]

NARRATIVE: CASE EVENT DATE: 20040825
